FAERS Safety Report 7793636-1 (Version None)
Quarter: 2011Q4

REPORT INFORMATION
  Report Type: 
  Country: None (occurrence: None)
  Receive Date: 20111003
  Receipt Date: 20110321
  Transmission Date: 20120403
  Serious: No
  Sender: FDA-Public Use
  Company Number: US-BAYER-2011-025302

PATIENT
  Age: 85 Year
  Sex: Male

DRUGS (3)
  1. ALLOPURINOL [Concomitant]
     Dosage: UNK
  2. LEVITRA [Suspect]
     Dosage: 20 MG, QD
     Route: 048
     Dates: start: 20110318, end: 20110320
  3. COUMADIN [Concomitant]
     Dosage: UNK

REACTIONS (1)
  - DRUG INEFFECTIVE [None]
